FAERS Safety Report 9476059 (Version 1)
Quarter: 2013Q3

REPORT INFORMATION
  Report Type: Spontaneous
  Country: US (occurrence: None)
  Receive Date: 20130821
  Receipt Date: 20130821
  Transmission Date: 20140515
  Serious: Yes (Hospitalization)
  Sender: FDA-Public Use
  Company Number: 1847947

PATIENT
  Age: 72 Year
  Sex: Male

DRUGS (3)
  1. OXALIPLATIN [Suspect]
     Indication: GASTRIC CANCER
  2. FLUOROURACIL [Concomitant]
  3. FOLNIC ACID [Concomitant]

REACTIONS (2)
  - Torsade de pointes [None]
  - Atrioventricular block [None]
